FAERS Safety Report 8549418-6 (Version None)
Quarter: 2012Q3

REPORT INFORMATION
  Report Type: 
  Country: None (occurrence: None)
  Receive Date: 20120730
  Receipt Date: 20120720
  Transmission Date: 20120928
  Serious: Yes (Life-Threatening, Hospitalization, Other)
  Sender: FDA-Public Use
  Company Number: FR-PFIZER INC-2012181360

PATIENT
  Age: 65 Year
  Sex: Male

DRUGS (11)
  1. CORDARONE [Suspect]
     Indication: ATRIAL FLUTTER
     Dosage: 1 DF, 1X/DAY, 5 DAYS PER WEEK
     Route: 048
     Dates: start: 20120518, end: 20120630
  2. BISOPROLOL FUMARATE [Concomitant]
     Dosage: UNK
     Dates: end: 20120601
  3. CRESTOR [Concomitant]
     Dosage: UNK
     Dates: start: 20111001, end: 20120601
  4. LASIX [Concomitant]
     Dosage: UNK
     Dates: start: 20111001, end: 20120601
  5. COUMADIN [Concomitant]
     Dosage: UNK
     Dates: start: 20111001, end: 20120629
  6. MYFORTIC [Suspect]
     Indication: IMMUNOSUPPRESSANT DRUG THERAPY
     Dosage: 360 MG, 2X/DAY
     Route: 048
     Dates: start: 20111001, end: 20120630
  7. RAMIPRIL [Concomitant]
     Dosage: UNK
     Dates: start: 20120315, end: 20120601
  8. PREDNISONE TAB [Concomitant]
     Dosage: UNK
     Dates: end: 20120629
  9. ASPIRIN [Concomitant]
     Dosage: UNK
     Dates: start: 20111001, end: 20120601
  10. MAG 2 [Concomitant]
     Dosage: UNK
     Dates: end: 20120629
  11. CERTICAN [Suspect]
     Indication: IMMUNOSUPPRESSANT DRUG THERAPY
     Dosage: 1 DF, 2X/DAY
     Route: 048
     Dates: start: 20120101, end: 20120629

REACTIONS (5)
  - ACUTE PULMONARY OEDEMA [None]
  - INTERSTITIAL LUNG DISEASE [None]
  - ACUTE RESPIRATORY DISTRESS SYNDROME [None]
  - PNEUMOCYSTIS TEST POSITIVE [None]
  - RENAL FAILURE ACUTE [None]
